FAERS Safety Report 6763592-3 (Version None)
Quarter: 2010Q2

REPORT INFORMATION
  Report Type: 
  Country: None (occurrence: None)
  Receive Date: 20100610
  Receipt Date: 20100604
  Transmission Date: 20101027
  Serious: Yes (Hospitalization)
  Sender: FDA-Public Use
  Company Number: US-ELI_LILLY_AND_COMPANY-US201006002259

PATIENT
  Sex: Male

DRUGS (5)
  1. HUMALOG MIX 75/25 [Suspect]
     Indication: DIABETES MELLITUS
     Dosage: 25 U, DAILY (1/D)
  2. HUMALOG MIX 75/25 [Suspect]
     Dosage: UNK, AS NEEDED
  3. HUMALOG MIX 75/25 [Suspect]
     Dosage: 25 U, DAILY (1/D)
  4. HUMALOG MIX 75/25 [Suspect]
     Dosage: UNK, AS NEEDED
  5. HUMALOG [Suspect]
     Indication: DIABETES MELLITUS
     Dosage: UNK, AS NEEDED

REACTIONS (10)
  - BLOOD GLUCOSE DECREASED [None]
  - BLOOD GLUCOSE INCREASED [None]
  - DEMENTIA [None]
  - DRUG INEFFECTIVE [None]
  - FEAR [None]
  - GLYCOSYLATED HAEMOGLOBIN INCREASED [None]
  - HYPERTENSION [None]
  - HYPOTENSION [None]
  - MALAISE [None]
  - TREMOR [None]
